FAERS Safety Report 12429884 (Version 3)
Quarter: 2016Q3

REPORT INFORMATION
  Report Type: Spontaneous
  Country: FR (occurrence: FR)
  Receive Date: 20160602
  Receipt Date: 20160803
  Transmission Date: 20161109
  Serious: No
  Sender: FDA-Public Use
  Company Number: FR-ABBVIE-16P-056-1640396-00

PATIENT
  Sex: Male

DRUGS (3)
  1. CIALIS [Interacting]
     Active Substance: TADALAFIL
     Indication: PRODUCT USED FOR UNKNOWN INDICATION
     Dosage: TOTAL OF 2 TABLETS.
     Route: 065
  2. RIBAVIRIN. [Interacting]
     Active Substance: RIBAVIRIN
     Indication: HEPATITIS C
     Route: 048
  3. VIEKIRAX [Suspect]
     Active Substance: OMBITASVIR\PARITAPREVIR\RITONAVIR
     Indication: HEPATITIS C
     Route: 048

REACTIONS (7)
  - Myalgia [Recovered/Resolved]
  - Mood altered [Unknown]
  - Pain [Recovering/Resolving]
  - Irritability [Unknown]
  - Fatigue [Unknown]
  - Drug interaction [Unknown]
  - Nervousness [Unknown]
